FAERS Safety Report 7542532-3 (Version None)
Quarter: 2011Q2

REPORT INFORMATION
  Report Type: 
  Country: None (occurrence: None)
  Receive Date: 20110606
  Receipt Date: 20110526
  Transmission Date: 20111010
  Serious: Yes (Hospitalization, Other)
  Sender: FDA-Public Use
  Company Number: WAES 1008USA03755

PATIENT
  Age: 65 Year
  Sex: Male
  Weight: 92.0802 kg

DRUGS (8)
  1. PLACEBO [Suspect]
     Indication: ACUTE CORONARY SYNDROME
     Dosage: PO
     Route: 048
     Dates: start: 20080812
  2. MICARDIS [Concomitant]
  3. ASPIRIN [Concomitant]
  4. SYNTHROID [Concomitant]
  5. TAB PLACEBO (UNSOECIFIED) UNK [Suspect]
     Dosage: PO
     Route: 048
     Dates: start: 20080812
  6. PLAVIX [Concomitant]
  7. NEXIUM [Concomitant]
  8. VYTORIN [Suspect]
     Indication: ACUTE CORONARY SYNDROME
     Dosage: DAILY/PO
     Route: 048
     Dates: start: 20080812

REACTIONS (1)
  - THYROID CANCER [None]
